FAERS Safety Report 13332268 (Version 1)
Quarter: 2017Q1

REPORT INFORMATION
  Report Type: Spontaneous
  Country: US (occurrence: US)
  Receive Date: 20170313
  Receipt Date: 20170313
  Transmission Date: 20170428
  Serious: Yes (Hospitalization)
  Sender: FDA-Public Use
  Company Number: None

PATIENT
  Age: 30 Year
  Sex: Male
  Weight: 84.2 kg

DRUGS (1)
  1. IBUPROFEN. [Suspect]
     Active Substance: IBUPROFEN
     Indication: GASTRITIS
     Route: 048
     Dates: start: 20160608, end: 20160725

REACTIONS (2)
  - Gastric ulcer [None]
  - Oesophagitis [None]

NARRATIVE: CASE EVENT DATE: 20160707
